FAERS Safety Report 4598189-7 (Version None)
Quarter: 2005Q1

REPORT INFORMATION
  Report Type: 
  Country: None (occurrence: None)
  Receive Date: 20050304
  Receipt Date: 20050301
  Transmission Date: 20050727
  Serious: Yes (Other)
  Sender: FDA-Public Use
  Company Number: PHBS2005JP03131

PATIENT
  Age: 16 Year
  Sex: Female

DRUGS (3)
  1. DIOVAN [Suspect]
     Dosage: 1520 MG, ONCE/SINGLE
     Route: 048
     Dates: start: 20050221, end: 20050221
  2. AMLODIN [Suspect]
     Dosage: 130 MG, ONCE/SINGLE
     Route: 048
     Dates: start: 20050221, end: 20050221
  3. BEZATOL - SLOW RELEASE [Suspect]
     Dosage: 9200 MG, ONCE/SINGLE
     Route: 048
     Dates: start: 20050221, end: 20050221

REACTIONS (6)
  - BLOOD PRESSURE DECREASED [None]
  - INTENTIONAL MISUSE [None]
  - RENAL FAILURE [None]
  - SHOCK [None]
  - SUICIDE ATTEMPT [None]
  - URINE OUTPUT DECREASED [None]
